FAERS Safety Report 5208795-4 (Version None)
Quarter: 2007Q1

REPORT INFORMATION
  Report Type: 
  Country: None (occurrence: None)
  Receive Date: 20070116
  Receipt Date: 20070109
  Transmission Date: 20070707
  Serious: Yes (Disabling, Other)
  Sender: FDA-Public Use
  Company Number: 2006UW08585

PATIENT
  Age: 47 Year
  Sex: Male
  Weight: 86.4 kg

DRUGS (8)
  1. ENTOCORT EC [Suspect]
     Indication: COLITIS ULCERATIVE
     Route: 048
     Dates: start: 20010104
  2. ENTOCORT EC [Suspect]
     Indication: CROHN'S DISEASE
     Route: 048
     Dates: start: 20010104
  3. ENTOCORT EC [Suspect]
     Route: 048
     Dates: end: 20020401
  4. ENTOCORT EC [Suspect]
     Route: 048
     Dates: end: 20020401
  5. VEXOL [Concomitant]
     Indication: DRY EYE
  6. VEXOL [Concomitant]
     Indication: UVEITIS
  7. SULFASALAZINE [Concomitant]
  8. BIAXIN [Concomitant]

REACTIONS (4)
  - DRUG INEFFECTIVE [None]
  - GLAUCOMA [None]
  - VISION BLURRED [None]
  - VISUAL ACUITY REDUCED [None]
